FAERS Safety Report 8214871-4 (Version None)
Quarter: 2012Q1

REPORT INFORMATION
  Report Type: 
  Country: None (occurrence: None)
  Receive Date: 20120316
  Receipt Date: 20120307
  Transmission Date: 20120608
  Serious: Yes (Other)
  Sender: FDA-Public Use
  Company Number: CA-JNJFOC-20120304911

PATIENT
  Sex: Male

DRUGS (1)
  1. REMICADE [Suspect]
     Indication: ANKYLOSING SPONDYLITIS
     Route: 042
     Dates: start: 20120305, end: 20120305

REACTIONS (7)
  - INFUSION RELATED REACTION [None]
  - URTICARIA [None]
  - CHEST PAIN [None]
  - BLOOD PRESSURE INCREASED [None]
  - FLUSHING [None]
  - THROAT TIGHTNESS [None]
  - DYSPNOEA [None]
